FAERS Safety Report 6767344-X (Version None)
Quarter: 2010Q2

REPORT INFORMATION
  Report Type: 
  Country: None (occurrence: None)
  Receive Date: 20100611
  Receipt Date: 20100611
  Transmission Date: 20101027
  Serious: Yes (Other)
  Sender: FDA-Public Use
  Company Number: None

PATIENT
  Sex: Female
  Weight: 117.9352 kg

DRUGS (1)
  1. ZANAFLEX [Suspect]
     Indication: HEADACHE
     Dosage: 4MG 8 HRS PRN PO ONCE
     Route: 048
     Dates: start: 20100610, end: 20100610

REACTIONS (11)
  - ACTIVITIES OF DAILY LIVING IMPAIRED [None]
  - CRYING [None]
  - DIZZINESS [None]
  - DRY MOUTH [None]
  - FATIGUE [None]
  - FEELING ABNORMAL [None]
  - HEART RATE ABNORMAL [None]
  - HYPOAESTHESIA FACIAL [None]
  - NAUSEA [None]
  - NO THERAPEUTIC RESPONSE [None]
  - PARAESTHESIA [None]
